FAERS Safety Report 13875099 (Version 1)
Quarter: 2017Q3

REPORT INFORMATION
  Report Type: Spontaneous
  Country: IT (occurrence: IT)
  Receive Date: 20170816
  Receipt Date: 20170816
  Transmission Date: 20171127
  Serious: Yes (Other)
  Sender: FDA-Public Use
  Company Number: IT-MYLANLABS-2017M1050395

PATIENT

DRUGS (5)
  1. LEVETIRACETAM MYLAN GENERICS 1000MG COMPRESSE RIVESTITE CON FILM [Suspect]
     Active Substance: LEVETIRACETAM
     Indication: MENINGIOMA
     Dosage: 250 MG, UNK
     Route: 048
  2. LEVETIRACETAM MYLAN GENERICS 1000MG COMPRESSE RIVESTITE CON FILM [Suspect]
     Active Substance: LEVETIRACETAM
     Dosage: 1000 MG, BID
     Route: 048
     Dates: start: 20170213
  3. LEVETIRACETAM MYLAN GENERICS 1000MG COMPRESSE RIVESTITE CON FILM [Suspect]
     Active Substance: LEVETIRACETAM
     Dosage: UNK
  4. BENTELAN [Concomitant]
     Active Substance: BETAMETHASONE SODIUM PHOSPHATE
     Indication: PRODUCT USED FOR UNKNOWN INDICATION
     Dosage: UNK
  5. LEVETIRACETAM MYLAN GENERICS 1000MG COMPRESSE RIVESTITE CON FILM [Suspect]
     Active Substance: LEVETIRACETAM
     Dosage: 1000 MG, DAILY
     Route: 048

REACTIONS (4)
  - Rash macular [Unknown]
  - Off label use [Unknown]
  - Erythema [Unknown]
  - Rash pustular [None]

NARRATIVE: CASE EVENT DATE: 20170213
